FAERS Safety Report 12460125 (Version 1)
Quarter: 2016Q2

REPORT INFORMATION
  Report Type: Spontaneous
  Country: US (occurrence: US)
  Receive Date: 20160613
  Receipt Date: 20160613
  Transmission Date: 20160815
  Serious: No
  Sender: FDA-Public Use
  Company Number: US-PFIZER INC-2016292058

PATIENT
  Age: 49 Year
  Sex: Female

DRUGS (2)
  1. FLAGYL [Suspect]
     Active Substance: METRONIDAZOLE\METRONIDAZOLE HYDROCHLORIDE
     Dosage: UNK
  2. TOPAMAX [Suspect]
     Active Substance: TOPIRAMATE
     Dosage: UNK

REACTIONS (3)
  - Urticaria [Unknown]
  - Rash [Unknown]
  - Drug hypersensitivity [Unknown]
